FAERS Safety Report 15495554 (Version 2)
Quarter: 2018Q4

REPORT INFORMATION
  Report Type: Spontaneous
  Country: US (occurrence: US)
  Receive Date: 20181013
  Receipt Date: 20181025
  Transmission Date: 20190205
  Serious: Yes (Other)
  Sender: FDA-Public Use
  Company Number: US-TEVA-2018-US-962023

PATIENT
  Sex: Female

DRUGS (2)
  1. LAMOTRIGINE EXTENDED RELEASE [Suspect]
     Active Substance: LAMOTRIGINE
     Dosage: DOSE STRENGTH:  250
     Route: 065
  2. OXYBUTYNIN TEVA [Suspect]
     Active Substance: OXYBUTYNIN
     Route: 065

REACTIONS (1)
  - Coeliac disease [Unknown]
